FAERS Safety Report 8534142-6 (Version None)
Quarter: 2012Q3

REPORT INFORMATION
  Report Type: 
  Country: None (occurrence: None)
  Receive Date: 20120724
  Receipt Date: 20120716
  Transmission Date: 20120928
  Serious: Yes (Death, Hospitalization)
  Sender: FDA-Public Use
  Company Number: US-009507513-2011SP040939

PATIENT

DRUGS (2)
  1. NUVARING [Suspect]
     Indication: CONTRACEPTION
     Dosage: UNK
     Route: 067
     Dates: start: 20071222
  2. NUVARING [Suspect]
     Dosage: UNK
     Dates: start: 20090101, end: 20090829

REACTIONS (4)
  - CYSTITIS [None]
  - VULVOVAGINAL MYCOTIC INFECTION [None]
  - DEEP VEIN THROMBOSIS [None]
  - DRUG HYPERSENSITIVITY [None]
